FAERS Safety Report 6988186-6 (Version None)
Quarter: 2010Q3

REPORT INFORMATION
  Report Type: 
  Country: None (occurrence: None)
  Receive Date: 20100916
  Receipt Date: 20100909
  Transmission Date: 20110219
  Serious: Yes (Hospitalization)
  Sender: FDA-Public Use
  Company Number: JP-ROCHE-704645

PATIENT
  Sex: Female
  Weight: 77.3 kg

DRUGS (22)
  1. TOCILIZUMAB [Suspect]
     Indication: RHEUMATOID ARTHRITIS
     Dosage: FORM: INJECTION
     Route: 048
     Dates: start: 20091001, end: 20091001
  2. TOCILIZUMAB [Suspect]
     Dosage: FORM: INJECTION
     Route: 048
     Dates: start: 20091029, end: 20091029
  3. TOCILIZUMAB [Suspect]
     Dosage: FORM: INJECTION
     Route: 048
     Dates: start: 20091126, end: 20091126
  4. TOCILIZUMAB [Suspect]
     Dosage: FORM: INJECTION
     Route: 048
     Dates: start: 20091224, end: 20091224
  5. TOCILIZUMAB [Suspect]
     Dosage: FORM: INJECTION
     Route: 048
     Dates: start: 20100121, end: 20100121
  6. TOCILIZUMAB [Suspect]
     Dosage: DISCONTINUED.
     Route: 048
     Dates: start: 20100218, end: 20100218
  7. AZULFIDINE [Concomitant]
     Dosage: DRUG NAME: AZULFIDINE-EN(SALAZOSULFAPYRIDINE), FORM: ENTERIC COATING DRUG
     Route: 048
  8. METOLATE [Concomitant]
     Route: 048
  9. MEDROL [Concomitant]
     Route: 048
  10. FLUCAM [Concomitant]
     Route: 048
  11. OMEPRAZOLE [Concomitant]
     Dosage: FORM: ENTERIC COATING DRUG
     Route: 048
  12. MEVALOTIN [Concomitant]
     Dosage: DOSE FORM: PER ORAL AGENT, DRUG NAME: MEVALOTIN(PRAVASTATIN SODIUM)
     Route: 048
  13. DIOVAN [Concomitant]
     Route: 048
  14. METHYCOBAL [Concomitant]
     Dosage: FORM: PERORAL AGENT
     Route: 048
  15. JUVELA NICOTINATE [Concomitant]
     Dosage: FORM: PERORAL AGENT
     Route: 048
  16. EVISTA [Concomitant]
     Dosage: DRUG NAME: EVISTA TAB 60MG(RALOXIFENE HYDROCHLORIDE)
     Route: 048
  17. FOLIAMIN [Concomitant]
     Dosage: FORM: PERORAL AGENT
     Route: 048
  18. MAGMITT [Concomitant]
     Dosage: FORM: PERORAL AGENT
     Route: 048
  19. NORVASC [Concomitant]
     Dosage: DRUG NAME: NORVASC OD(AMLODIPINE BESILATE)
     Route: 048
     Dates: start: 20090903
  20. KERATINAMIN [Concomitant]
     Dosage: FORM: OINTMENT AND CREAM, NOTE: DOSAGE IS UNCERTAIN
     Route: 061
  21. VOLTAREN [Concomitant]
     Dosage: DRUG NAME: VOLTAREN:TAPE15MG(DICLOFENAC SODIUM), NOTE: PROPERLY, FORM: TAPE
     Route: 061
  22. FLURBIPROFEN [Concomitant]
     Dosage: FORM: TAPE, NOTE: PROPERLY, DRUG NAME REPORTED AS ADOFEED(FLURBIPROFEN)
     Route: 061

REACTIONS (1)
  - SKIN ULCER [None]
